FAERS Safety Report 25432078 (Version 1)
Quarter: 2025Q2

REPORT INFORMATION
  Report Type: Spontaneous
  Country: GB (occurrence: GB)
  Receive Date: 20250613
  Receipt Date: 20250613
  Transmission Date: 20250717
  Serious: Yes (Other)
  Sender: RANBAXY
  Company Number: GB-SUN PHARMACEUTICAL INDUSTRIES LTD-2025RR-510328

PATIENT
  Sex: Male

DRUGS (1)
  1. ACYCLOVIR [Suspect]
     Active Substance: ACYCLOVIR
     Indication: Adverse drug reaction
     Route: 065

REACTIONS (4)
  - Hypersensitivity [Unknown]
  - Dermatitis allergic [Unknown]
  - Swelling face [Unknown]
  - Paraesthesia oral [Unknown]
